FAERS Safety Report 18322482 (Version 1)
Quarter: 2020Q3

REPORT INFORMATION
  Report Type: Spontaneous
  Country: IT (occurrence: IT)
  Receive Date: 20200928
  Receipt Date: 20200928
  Transmission Date: 20201103
  Serious: Yes (Hospitalization)
  Sender: FDA-Public Use
  Company Number: IT-ALLERGAN-2036554US

PATIENT
  Sex: Male

DRUGS (5)
  1. BACTRIM [Suspect]
     Active Substance: SULFAMETHOXAZOLE\TRIMETHOPRIM
     Indication: SEPSIS
     Dosage: 12 DF, QD
     Route: 048
     Dates: start: 20200821, end: 20200831
  2. KEPPRA [Concomitant]
     Active Substance: LEVETIRACETAM
  3. COLISTIMETATO ACCORD [Suspect]
     Active Substance: COLISTIMETHATE SODIUM
     Indication: SEPSIS
     Dosage: 4.5 MILLION IU, QD
     Route: 042
     Dates: start: 20200825
  4. CASPOFUNGIN DR.REDDY^S [Suspect]
     Active Substance: CASPOFUNGIN ACETATE
     Indication: CANDIDA INFECTION
     Dosage: 1 DF, QD
     Route: 048
     Dates: start: 20200825
  5. CEFTAROLINE FOSAMIL ? BP [Suspect]
     Active Substance: CEFTAROLINE FOSAMIL
     Indication: SOFT TISSUE INFECTION
     Dosage: 1 DF, QD
     Route: 042

REACTIONS (1)
  - Myelosuppression [Not Recovered/Not Resolved]

NARRATIVE: CASE EVENT DATE: 20200830
